FAERS Safety Report 8947122 (Version 3)
Quarter: 2013Q1

REPORT INFORMATION
  Report Type: Spontaneous
  Country: JP (occurrence: JP)
  Receive Date: 20121205
  Receipt Date: 20130314
  Transmission Date: 20140127
  Serious: Yes (Life-Threatening, Hospitalization, Disabling, Other)
  Sender: FDA-Public Use
  Company Number: JP-ABBOTT-12P-087-0963895-00

PATIENT
  Age: 69 Year
  Sex: Female

DRUGS (4)
  1. KLARICID [Suspect]
     Indication: NASOPHARYNGITIS
     Route: 048
     Dates: start: 20120221
  2. KLARICID [Suspect]
     Indication: BRONCHITIS
  3. LOXOPROFEN SODIUM [Suspect]
     Indication: NASOPHARYNGITIS
     Route: 048
     Dates: start: 20120221
  4. REBAMIPIDE [Suspect]
     Indication: NASOPHARYNGITIS
     Route: 048
     Dates: start: 20120221

REACTIONS (3)
  - Renal failure acute [Recovered/Resolved with Sequelae]
  - Nephritis [Unknown]
  - Tubulointerstitial nephritis [Unknown]
